FAERS Safety Report 6050152-5 (Version None)
Quarter: 2009Q1

REPORT INFORMATION
  Report Type: 
  Country: None (occurrence: None)
  Receive Date: 20090122
  Receipt Date: 20090122
  Transmission Date: 20090719
  Serious: Yes (Hospitalization)
  Sender: FDA-Public Use
  Company Number: None

PATIENT
  Age: 61 Year
  Sex: Female
  Weight: 70 kg

DRUGS (1)
  1. EPTIFIBATIDE 75 MG/ 100 ML [Suspect]
     Indication: ACUTE CORONARY SYNDROME
     Dosage: 2 MCG/KG/MIN CONTINOUS IV DRIP
     Route: 041

REACTIONS (1)
  - THROMBOCYTOPENIA [None]
